FAERS Safety Report 5626070-0 (Version None)
Quarter: 2008Q1

REPORT INFORMATION
  Report Type: 
  Country: None (occurrence: None)
  Receive Date: 20080214
  Receipt Date: 20080211
  Transmission Date: 20080703
  Serious: Yes (Death, Other)
  Sender: FDA-Public Use
  Company Number: US-BRISTOL-MYERS SQUIBB COMPANY-14074413

PATIENT
  Age: 31 Year
  Sex: Female

DRUGS (1)
  1. IXEMPRA [Suspect]
     Indication: BREAST CANCER METASTATIC

REACTIONS (3)
  - DEATH [None]
  - MUCOSAL INFLAMMATION [None]
  - PANCYTOPENIA [None]
